FAERS Safety Report 4398393-7 (Version None)
Quarter: 2004Q3

REPORT INFORMATION
  Report Type: 
  Country: None (occurrence: None)
  Receive Date: 20040715
  Receipt Date: 20040617
  Transmission Date: 20050211
  Serious: Yes (Hospitalization, Disabling)
  Sender: FDA-Public Use
  Company Number: US-MERCK-0406USA01845

PATIENT
  Age: 53 Year
  Sex: Male

DRUGS (4)
  1. FLOVENT [Concomitant]
     Route: 065
  2. LISINOPRIL [Concomitant]
     Route: 065
  3. SINGULAIR [Suspect]
     Indication: ASTHMA
     Route: 048
     Dates: start: 20010101, end: 20030101
  4. SEREVENT [Concomitant]
     Route: 065

REACTIONS (3)
  - CHOLANGITIS SCLEROSING [None]
  - ENCEPHALITIS [None]
  - EOSINOPHILIA [None]
